FAERS Safety Report 9850485 (Version 1)
Quarter: 2013Q4

REPORT INFORMATION
  Report Type: Spontaneous
  Country: US (occurrence: None)
  Receive Date: 20131226
  Receipt Date: 20131226
  Transmission Date: 20140711
  Serious: Yes (Hospitalization)
  Sender: FDA-Public Use
  Company Number: PHEH2013US001709

PATIENT
  Age: 64 Year
  Sex: Female

DRUGS (2)
  1. DIOVAN [Suspect]
  2. VALSARTAN [Suspect]
     Indication: HYPERTENSION
     Route: 048

REACTIONS (2)
  - Blood pressure increased [None]
  - Headache [None]
